FAERS Safety Report 8325755-5 (Version None)
Quarter: 2012Q2

REPORT INFORMATION
  Report Type: 
  Country: None (occurrence: None)
  Receive Date: 20120501
  Receipt Date: 20120419
  Transmission Date: 20120825
  Serious: No
  Sender: FDA-Public Use
  Company Number: US-BIOGENIDEC-2011BI027553

PATIENT
  Age: 42 Year
  Sex: Female

DRUGS (1)
  1. TYSABRI [Suspect]
     Indication: MULTIPLE SCLEROSIS
     Route: 042
     Dates: start: 20100201

REACTIONS (9)
  - HEADACHE [None]
  - NAUSEA [None]
  - PAIN [None]
  - VOMITING [None]
  - PAIN IN EXTREMITY [None]
  - MULTIPLE SCLEROSIS [None]
  - MALAISE [None]
  - HERPES ZOSTER [None]
  - BLOOD PRESSURE DECREASED [None]
